FAERS Safety Report 14066664 (Version 1)
Quarter: 2017Q4

REPORT INFORMATION
  Report Type: Spontaneous
  Country: US (occurrence: US)
  Receive Date: 20171006
  Receipt Date: 20171006
  Transmission Date: 20180321
  Serious: Yes (Other)
  Sender: FDA-Public Use
  Company Number: None

PATIENT
  Age: 58 Year
  Sex: Female
  Weight: 53.55 kg

DRUGS (1)
  1. XIIDRA [Suspect]
     Active Substance: LIFITEGRAST
     Indication: KERATITIS
     Route: 031
     Dates: start: 20170927, end: 20171005

REACTIONS (2)
  - Eye irritation [None]
  - Madarosis [None]

NARRATIVE: CASE EVENT DATE: 20170928
